FAERS Safety Report 9979853 (Version 3)
Quarter: 2014Q2

REPORT INFORMATION
  Report Type: Spontaneous
  Country: US (occurrence: US)
  Receive Date: 20140306
  Receipt Date: 20140430
  Transmission Date: 20141212
  Serious: Yes (Death)
  Sender: FDA-Public Use
  Company Number: US-ROCHE-1359095

PATIENT
  Age: 68 Year
  Sex: Male

DRUGS (3)
  1. ERIVEDGE [Suspect]
     Indication: PRODUCT USED FOR UNKNOWN INDICATION
     Route: 048
     Dates: start: 20130809
  2. LEVITRA [Concomitant]
  3. ZOLPIDEM [Concomitant]

REACTIONS (1)
  - Non-Hodgkin^s lymphoma [Fatal]
